FAERS Safety Report 12410134 (Version 1)
Quarter: 2016Q2

REPORT INFORMATION
  Report Type: Report from Study
  Country: FR (occurrence: FR)
  Receive Date: 20160527
  Receipt Date: 20160527
  Transmission Date: 20160815
  Serious: Yes (Other)
  Sender: FDA-Public Use
  Company Number: FR-ROCHE-1764048

PATIENT
  Sex: Male

DRUGS (9)
  1. RANIBIZUMAB [Suspect]
     Active Substance: RANIBIZUMAB
     Dosage: 0.5 MG, (LEFT EYE)
     Route: 050
     Dates: start: 20151027, end: 20151027
  2. RANIBIZUMAB [Suspect]
     Active Substance: RANIBIZUMAB
     Dosage: 0.5 MG, (LEFT EYE)
     Route: 050
     Dates: start: 20150113
  3. RANIBIZUMAB [Suspect]
     Active Substance: RANIBIZUMAB
     Dosage: 0.5 MG, LEFT EYE
     Route: 050
     Dates: start: 20150601
  4. RANIBIZUMAB [Suspect]
     Active Substance: RANIBIZUMAB
     Dosage: 0.5 MG, (LEFT EYE)
     Route: 050
     Dates: start: 20141218
  5. RANIBIZUMAB [Suspect]
     Active Substance: RANIBIZUMAB
     Dosage: 0.5 MG, (LEFT EYE)
     Route: 050
     Dates: start: 20140522, end: 20140522
  6. RANIBIZUMAB [Suspect]
     Active Substance: RANIBIZUMAB
     Indication: MACULAR OEDEMA
     Dosage: 0.5 MG, (LEFT EYE)
     Route: 050
     Dates: start: 20140327
  7. RANIBIZUMAB [Suspect]
     Active Substance: RANIBIZUMAB
     Dosage: 0.5 MG, (LEFT EYE)
     Route: 050
     Dates: start: 20150824
  8. RANIBIZUMAB [Suspect]
     Active Substance: RANIBIZUMAB
     Dosage: 0.5 MG, (LEFT EYE)
     Route: 050
     Dates: start: 20140425
  9. RANIBIZUMAB [Suspect]
     Active Substance: RANIBIZUMAB
     Dosage: 0.5 MG, (LEFT EYE)
     Route: 050
     Dates: start: 20140819

REACTIONS (4)
  - Ischaemia [Recovered/Resolved]
  - Blood pressure increased [Unknown]
  - Drug hypersensitivity [Unknown]
  - Macular oedema [Unknown]

NARRATIVE: CASE EVENT DATE: 201407
